FAERS Safety Report 6579502-8 (Version None)
Quarter: 2010Q1

REPORT INFORMATION
  Report Type: 
  Country: None (occurrence: None)
  Receive Date: 20100203
  Receipt Date: 20100118
  Transmission Date: 20100710
  Serious: Yes (Death)
  Sender: FDA-Public Use
  Company Number: B0627629A

PATIENT
  Age: 28 Year
  Sex: Female

DRUGS (7)
  1. IBUPROFEN [Suspect]
  2. ACYCLOVIR [Suspect]
  3. AZITHROMYCIN [Suspect]
  4. METRONIDAZOLE [Suspect]
  5. CARISOPRODOL (FORMULATION UNKNOWN) (GENERIC) (CARISOPRODOL) [Suspect]
  6. OPIATE (FORMULATION UNKNOWN) (GENERIC) (OPIATE) [Suspect]
  7. GUAIPHENESIN+PSEUDOEPHEDR (FORMULATION UNKNOWN) (GENERIC) (GUAIFENESIN [Suspect]

REACTIONS (1)
  - CARDIO-RESPIRATORY ARREST [None]
